FAERS Safety Report 9700795 (Version 1)
Quarter: 2013Q4

REPORT INFORMATION
  Report Type: Report from Study
  Country: US (occurrence: US)
  Receive Date: 20131121
  Receipt Date: 20131121
  Transmission Date: 20140711
  Serious: Yes (Death, Hospitalization)
  Sender: FDA-Public Use
  Company Number: PHEH2013US024216

PATIENT
  Sex: Male

DRUGS (1)
  1. EXJADE [Suspect]
     Indication: DEFICIENCY ANAEMIA
     Dosage: 1000 MG, QD
     Route: 048

REACTIONS (2)
  - Haemorrhage [Fatal]
  - Leukaemia [Unknown]
